FAERS Safety Report 22131903 (Version 1)
Quarter: 2023Q1

REPORT INFORMATION
  Report Type: Spontaneous
  Country: PH (occurrence: None)
  Receive Date: 20230323
  Receipt Date: 20230323
  Transmission Date: 20230417
  Serious: Yes (Hospitalization)
  Sender: FDA-Public Use
  Company Number: 2023A065251

PATIENT
  Sex: Male

DRUGS (1)
  1. LYNPARZA [Suspect]
     Active Substance: OLAPARIB
     Indication: Prostate cancer
     Dosage: 150.0MG UNKNOWN
     Route: 048
     Dates: start: 202106, end: 202302

REACTIONS (4)
  - Submandibular abscess [Recovered/Resolved]
  - Salmonella bacteraemia [Recovered/Resolved]
  - Cellulitis [Recovered/Resolved]
  - Abscess [Not Recovered/Not Resolved]
